FAERS Safety Report 13943481 (Version 1)
Quarter: 2017Q3

REPORT INFORMATION
  Report Type: Spontaneous
  Country: US (occurrence: None)
  Receive Date: 20170907
  Receipt Date: 20170907
  Transmission Date: 20171128
  Serious: Yes (Other)
  Sender: FDA-Public Use
  Company Number: None

PATIENT
  Age: 70 Year
  Sex: Female
  Weight: 113.4 kg

DRUGS (22)
  1. LEVEMIR [Concomitant]
     Active Substance: INSULIN DETEMIR
  2. CARVEDILOL. [Concomitant]
     Active Substance: CARVEDILOL
  3. FUROSEMIDE. [Concomitant]
     Active Substance: FUROSEMIDE
  4. MECLIZINE [Concomitant]
     Active Substance: MECLIZINE HYDROCHLORIDE
  5. ION [Concomitant]
  6. TYLENOL [Concomitant]
     Active Substance: ACETAMINOPHEN
  7. METHANANENE HIPPURATE [Suspect]
     Active Substance: METHENAMINE HIPPURATE
     Indication: PROPHYLAXIS URINARY TRACT INFECTION
     Route: 048
     Dates: start: 20170726, end: 20170808
  8. METFORMIN [Concomitant]
     Active Substance: METFORMIN HYDROCHLORIDE
  9. VITAMIN D3 [Concomitant]
     Active Substance: CHOLECALCIFEROL
  10. AMLODIPINE [Concomitant]
     Active Substance: AMLODIPINE BESYLATE
  11. GLIPIZIDE. [Concomitant]
     Active Substance: GLIPIZIDE
  12. EYE VITAMIN [Concomitant]
  13. CENTRUM SILVER [Concomitant]
     Active Substance: MINERALS\VITAMINS
  14. CALCIUM [Concomitant]
     Active Substance: CALCIUM
  15. TUMS [Concomitant]
     Active Substance: CALCIUM CARBONATE
  16. STOOL SOFTENER (DOCUSATE) [Concomitant]
     Active Substance: DOCUSATE
  17. MYRBETRIQ [Concomitant]
     Active Substance: MIRABEGRON
  18. LEVOTHYROXINE. [Concomitant]
     Active Substance: LEVOTHYROXINE
  19. NEXIUM [Concomitant]
     Active Substance: ESOMEPRAZOLE MAGNESIUM
  20. LINZESS [Concomitant]
     Active Substance: LINACLOTIDE
  21. MAGNESIUM [Concomitant]
     Active Substance: MAGNESIUM
  22. BIOTIN [Concomitant]
     Active Substance: BIOTIN

REACTIONS (6)
  - Onychalgia [None]
  - Blister [None]
  - Skin exfoliation [None]
  - Pain in extremity [None]
  - Musculoskeletal disorder [None]
  - Peripheral swelling [None]

NARRATIVE: CASE EVENT DATE: 20170726
